FAERS Safety Report 7019290-4 (Version None)
Quarter: 2010Q3

REPORT INFORMATION
  Report Type: 
  Country: None (occurrence: None)
  Receive Date: 20100923
  Receipt Date: 20100908
  Transmission Date: 20110219
  Serious: Yes (Hospitalization)
  Sender: FDA-Public Use
  Company Number: AMAG201000346

PATIENT
  Age: 78 Year
  Sex: Male
  Weight: 104.8 kg

DRUGS (15)
  1. FERAHEME [Suspect]
     Indication: IRON DEFICIENCY ANAEMIA
     Dosage: 510 MG, SINGLE; INTRAVENOUS;
     Route: 042
     Dates: start: 20100819, end: 20100819
  2. FERAHEME [Suspect]
     Indication: IRON DEFICIENCY ANAEMIA
     Dosage: 510 MG, SINGLE; INTRAVENOUS;
     Route: 042
     Dates: start: 20100903, end: 20100903
  3. COREG [Concomitant]
  4. LASIX [Concomitant]
  5. LISINOPRIL (LISINOPRIL DIHYDRATE) [Concomitant]
  6. CYMBALTA [Concomitant]
  7. MUCINEX [Concomitant]
  8. ASPIRIN [Concomitant]
  9. ZOLOFT [Concomitant]
  10. LORAZEPAM [Concomitant]
  11. VITAMIN D [Concomitant]
  12. AMARYL [Concomitant]
  13. ENABLEX (DARIFENACIN) [Concomitant]
  14. ACETAMINOPHEN [Concomitant]
  15. EFFIENT (PRASUGREL) [Concomitant]

REACTIONS (6)
  - DYSPNOEA [None]
  - HYPERSENSITIVITY [None]
  - OXYGEN SATURATION DECREASED [None]
  - PNEUMONIA [None]
  - PRODUCTIVE COUGH [None]
  - SPUTUM DISCOLOURED [None]
